FAERS Safety Report 6130136-9 (Version None)
Quarter: 2009Q1

REPORT INFORMATION
  Report Type: 
  Country: None (occurrence: None)
  Receive Date: 20090324
  Receipt Date: 20090317
  Transmission Date: 20090719
  Serious: Yes (Other)
  Sender: FDA-Public Use
  Company Number: US-PFIZER INC-2009184988

PATIENT
  Sex: Female
  Weight: 56 kg

DRUGS (4)
  1. PROVERA [Suspect]
     Indication: MENOPAUSE
     Dosage: 10 MG, UNK
     Route: 048
     Dates: start: 19970428, end: 19970920
  2. PREMPHASE 14/14 [Suspect]
     Indication: MENOPAUSE
     Dosage: 0.625 MG, UNK
     Route: 048
     Dates: start: 19970331, end: 19990510
  3. PREMPHASE 14/14 [Suspect]
     Dosage: UNK
     Dates: start: 19980220, end: 19990510
  4. PREMPRO [Suspect]
     Indication: MENOPAUSE
     Dosage: 0.625 MG/2.5 MG
     Route: 048
     Dates: start: 19990501, end: 20000301

REACTIONS (1)
  - BREAST CANCER [None]
